FAERS Safety Report 22290693 (Version 4)
Quarter: 2023Q4

REPORT INFORMATION
  Report Type: Report from Study
  Country: US (occurrence: US)
  Receive Date: 20230505
  Receipt Date: 20231020
  Transmission Date: 20240109
  Serious: Yes (Other)
  Sender: FDA-Public Use
  Company Number: US-ABBVIE-4751628

PATIENT
  Sex: Female

DRUGS (2)
  1. RINVOQ [Suspect]
     Active Substance: UPADACITINIB
     Indication: Rheumatoid arthritis
     Dosage: FORM STRENGTH 15 MILLIGRAM?RINVOQ EXTEND RELEASE
     Route: 048
     Dates: start: 202206
  2. RINVOQ [Suspect]
     Active Substance: UPADACITINIB
     Indication: Rheumatoid arthritis
     Dosage: RINVOQ EXTEND RELEASE?STRENGTH:15MG
     Route: 048

REACTIONS (11)
  - Osteonecrosis [Not Recovered/Not Resolved]
  - Cardiovascular disorder [Not Recovered/Not Resolved]
  - Arthropathy [Not Recovered/Not Resolved]
  - Cyst [Not Recovered/Not Resolved]
  - Cartilage injury [Not Recovered/Not Resolved]
  - Rheumatoid arthritis [Unknown]
  - Bursitis [Not Recovered/Not Resolved]
  - Cough [Unknown]
  - Pain [Unknown]
  - Body mass index increased [Not Recovered/Not Resolved]
  - Gait disturbance [Not Recovered/Not Resolved]

NARRATIVE: CASE EVENT DATE: 20230101
